FAERS Safety Report 9238172 (Version 2)
Quarter: 2013Q3

REPORT INFORMATION
  Report Type: Spontaneous
  Country: US (occurrence: None)
  Receive Date: 20130415
  Receipt Date: 20130703
  Transmission Date: 20140515
  Serious: Yes (Hospitalization, Disabling, Other)
  Sender: FDA-Public Use
  Company Number: ACO_35336_2013

PATIENT
  Age: 51 Year
  Sex: Male
  Weight: 59 kg

DRUGS (1)
  1. AMPYRA (DALFAMPRIDINE) TABLET, 10MG [Suspect]
     Indication: GAIT DISTURBANCE
     Dates: start: 2010, end: 2011

REACTIONS (9)
  - Cardiac arrest [None]
  - Cerebrovascular accident [None]
  - Loss of consciousness [None]
  - Impaired healing [None]
  - Cystitis [None]
  - Abasia [None]
  - Weight decreased [None]
  - Visual impairment [None]
  - Asthenia [None]
